FAERS Safety Report 5804797-5 (Version None)
Quarter: 2008Q3

REPORT INFORMATION
  Report Type: 
  Country: None (occurrence: None)
  Receive Date: 20080709
  Receipt Date: 20080630
  Transmission Date: 20090109
  Serious: Yes (Death)
  Sender: FDA-Public Use
  Company Number: GB-ASTRAZENECA-2007SE02319

PATIENT
  Age: 85 Year
  Sex: Male

DRUGS (1)
  1. AMIAS [Suspect]
     Route: 065

REACTIONS (1)
  - INTENTIONAL OVERDOSE [None]
